FAERS Safety Report 15009334 (Version 1)
Quarter: 2018Q2

REPORT INFORMATION
  Report Type: Report from Study
  Country: US (occurrence: US)
  Receive Date: 20180614
  Receipt Date: 20180614
  Transmission Date: 20180711
  Serious: Yes (Other)
  Sender: FDA-Public Use
  Company Number: US-UCBSA-2018026282

PATIENT

DRUGS (1)
  1. LEVETIRACETAM. [Suspect]
     Active Substance: LEVETIRACETAM
     Indication: PRODUCT USED FOR UNKNOWN INDICATION
     Dosage: UNK
     Dates: start: 2018

REACTIONS (10)
  - Seizure [Unknown]
  - Panic attack [Unknown]
  - Anxiety [Unknown]
  - Amnesia [Unknown]
  - Deja vu [Unknown]
  - Head injury [Unknown]
  - Aura [Unknown]
  - Eye contusion [Unknown]
  - Affective disorder [Unknown]
  - Fatigue [Unknown]

NARRATIVE: CASE EVENT DATE: 2018
